FAERS Safety Report 21635202 (Version 2)
Quarter: 2023Q4

REPORT INFORMATION
  Report Type: Spontaneous
  Country: US (occurrence: US)
  Receive Date: 20221123
  Receipt Date: 20231115
  Transmission Date: 20240109
  Serious: Yes (Other)
  Sender: FDA-Public Use
  Company Number: US-NOVOPROD-961339

PATIENT
  Age: 57 Year
  Sex: Male
  Weight: 80 kg

DRUGS (5)
  1. HUMALOG [Concomitant]
     Active Substance: INSULIN LISPRO
     Dosage: 24.0,U,THRICE DAILY
     Dates: start: 20200526, end: 20210922
  2. BASAGLAR [Concomitant]
     Active Substance: INSULIN GLARGINE
     Dosage: 28.0,U,ONCE DAILY
     Dates: start: 20200526, end: 20210819
  3. LANTUS [Concomitant]
     Active Substance: INSULIN GLARGINE
     Dosage: 28.0,U,ONCE DAILY
     Dates: start: 20210820, end: 20210922
  4. INSULIN ASPART [Suspect]
     Active Substance: INSULIN ASPART
     Indication: Type 1 diabetes mellitus
     Dosage: 6 IU THRICE DAILY
     Dates: start: 20210923, end: 20220921
  5. INSULIN ASPART [Suspect]
     Active Substance: INSULIN ASPART
     Dosage: 6 IU + 7 IU + 8 IU

REACTIONS (1)
  - Hypoglycaemia [Recovered/Resolved]

NARRATIVE: CASE EVENT DATE: 20220914
